FAERS Safety Report 7951269-8 (Version None)
Quarter: 2011Q4

REPORT INFORMATION
  Report Type: 
  Country: None (occurrence: None)
  Receive Date: 20111201
  Receipt Date: 20111121
  Transmission Date: 20120403
  Serious: Yes (Hospitalization)
  Sender: FDA-Public Use
  Company Number: DE-JNJFOC-20111104173

PATIENT
  Age: 19 Year
  Sex: Female

DRUGS (1)
  1. REMICADE [Suspect]
     Indication: CROHN'S DISEASE
     Route: 042
     Dates: start: 20040101, end: 20060101

REACTIONS (7)
  - PAIN [None]
  - BONE PAIN [None]
  - PERITONSILLAR ABSCESS [None]
  - T-CELL LYMPHOMA STAGE IV [None]
  - GASTROINTESTINAL FISTULA [None]
  - DRUG INTOLERANCE [None]
  - HYPOCHROMIC ANAEMIA [None]
